FAERS Safety Report 16643746 (Version 1)
Quarter: 2019Q3

REPORT INFORMATION
  Report Type: Spontaneous
  Country: US (occurrence: US)
  Receive Date: 20190729
  Receipt Date: 20190729
  Transmission Date: 20191004
  Serious: No
  Sender: FDA-Public Use
  Company Number: US-PRINSTON PHARMACEUTICAL INC.-2018PRN01680

PATIENT
  Sex: Female

DRUGS (4)
  1. CLONAZEPAM (MYLAN) [Suspect]
     Active Substance: CLONAZEPAM
     Dosage: 1 MG, IN MORNING AND EVENING
     Dates: start: 2018
  2. CLONAZEPAM. [Suspect]
     Active Substance: CLONAZEPAM
     Dosage: 0.5 MG, IN THE AFTERNOON
     Dates: start: 2018
  3. CLONAZEPAM (MYLAN) [Suspect]
     Active Substance: CLONAZEPAM
     Dosage: 0.5 MG, IN AFTERNOON
  4. CLONAZEPAM. [Suspect]
     Active Substance: CLONAZEPAM
     Dosage: 1 MG IN THE MORNING AND EVENING
     Dates: start: 2018

REACTIONS (5)
  - Malaise [Unknown]
  - Reaction to excipient [Unknown]
  - Unevaluable event [Unknown]
  - Gastrointestinal disorder [Unknown]
  - Product substitution issue [Unknown]

NARRATIVE: CASE EVENT DATE: 2018
